FAERS Safety Report 17272341 (Version 1)
Quarter: 2020Q1

REPORT INFORMATION
  Report Type: Spontaneous
  Country: JP (occurrence: JP)
  Receive Date: 20200115
  Receipt Date: 20200115
  Transmission Date: 20200409
  Serious: Yes (Death, Hospitalization)
  Sender: FDA-Public Use
  Company Number: JP-ELI_LILLY_AND_COMPANY-JP202001004093AA

PATIENT
  Age: 70 Year
  Sex: Male

DRUGS (4)
  1. FOLIAMIN [Concomitant]
     Active Substance: FOLIC ACID
     Indication: PROPHYLAXIS
     Dosage: 0.5 MG, DAILY
     Route: 048
     Dates: start: 20140818
  2. ALIMTA [Suspect]
     Active Substance: PEMETREXED DISODIUM
     Indication: LUNG ADENOCARCINOMA STAGE IV
     Dosage: 875 MG, CYCLICAL
     Route: 041
     Dates: start: 20140829, end: 20150116
  3. METHYCOBAL [Concomitant]
     Active Substance: METHYLCOBALAMIN
     Indication: PROPHYLAXIS
     Dosage: 1000 UG
     Route: 028
     Dates: start: 20140818, end: 20141219
  4. CISPLATIN. [Concomitant]
     Active Substance: CISPLATIN
     Indication: LUNG ADENOCARCINOMA STAGE IV
     Dosage: 131 MG, CYCLICAL
     Route: 041
     Dates: start: 20140829, end: 20141125

REACTIONS (2)
  - Interstitial lung disease [Unknown]
  - Respiratory failure [Fatal]

NARRATIVE: CASE EVENT DATE: 20150116
